FAERS Safety Report 6289657-0 (Version None)
Quarter: 2009Q3

REPORT INFORMATION
  Report Type: 
  Country: None (occurrence: None)
  Receive Date: 20090730
  Receipt Date: 20080811
  Transmission Date: 20100115
  Serious: Yes (Death, Life-Threatening)
  Sender: FDA-Public Use
  Company Number: US-BRISTOL-MYERS SQUIBB COMPANY-14182521

PATIENT
  Age: 68 Year
  Sex: Female

DRUGS (2)
  1. COUMADIN [Suspect]
     Indication: DEEP VEIN THROMBOSIS
     Dosage: THERAPY DURATION : 18MAR06-MAR06
     Route: 048
     Dates: start: 20060318, end: 20060301
  2. LEVAQUIN [Suspect]
     Indication: INFECTION
     Dosage: THEARPY DURATION : 15MAR06-30MAR06
     Route: 042
     Dates: start: 20040321

REACTIONS (2)
  - CEREBRAL HAEMORRHAGE [None]
  - INTERNATIONAL NORMALISED RATIO INCREASED [None]
